FAERS Safety Report 16925961 (Version 1)
Quarter: 2019Q4

REPORT INFORMATION
  Report Type: Spontaneous
  Country: PT (occurrence: PT)
  Receive Date: 20191016
  Receipt Date: 20191016
  Transmission Date: 20200122
  Serious: Yes (Hospitalization, Other)
  Sender: FDA-Public Use
  Company Number: PT-GLAXOSMITHKLINE-PT2019GSK187479

PATIENT

DRUGS (2)
  1. VALPROIC ACID. [Suspect]
     Active Substance: VALPROIC ACID
     Indication: IDIOPATHIC GENERALISED EPILEPSY
     Dosage: UNK
  2. LAMOTRIGINE. [Suspect]
     Active Substance: LAMOTRIGINE
     Indication: IDIOPATHIC GENERALISED EPILEPSY
     Dosage: UNK

REACTIONS (9)
  - Splenomegaly [Unknown]
  - Hepatic function abnormal [Unknown]
  - Rash maculo-papular [Unknown]
  - Transaminases increased [Unknown]
  - Haemophagocytic lymphohistiocytosis [Unknown]
  - Hepatotoxicity [Unknown]
  - Pruritus [Unknown]
  - Pyrexia [Unknown]
  - Eosinophilia [Unknown]
